FAERS Safety Report 23804089 (Version 1)
Quarter: 2024Q2

REPORT INFORMATION
  Report Type: Spontaneous
  Country: US (occurrence: None)
  Receive Date: 20240430
  Receipt Date: 20240430
  Transmission Date: 20240716
  Serious: No
  Sender: FDA-Public Use
  Company Number: None

PATIENT
  Age: 49 Year
  Sex: Female

DRUGS (3)
  1. PRIMIDONE [Suspect]
     Active Substance: PRIMIDONE
     Indication: Essential tremor
     Dates: start: 20170310
  2. PROPOFOL [Suspect]
     Active Substance: PROPOFOL
     Dates: start: 20240416, end: 20240416
  3. SEVOFLURANE [Suspect]
     Active Substance: SEVOFLURANE

REACTIONS (3)
  - Respiratory depression [None]
  - Pain [None]
  - Anxiety [None]

NARRATIVE: CASE EVENT DATE: 20240416
